FAERS Safety Report 7465247-9 (Version None)
Quarter: 2011Q2

REPORT INFORMATION
  Report Type: 
  Country: None (occurrence: None)
  Receive Date: 20110509
  Receipt Date: 20110428
  Transmission Date: 20111010
  Serious: Yes (Other)
  Sender: FDA-Public Use
  Company Number: PHHY2011US36305

PATIENT
  Sex: Female

DRUGS (8)
  1. AREDIA [Suspect]
     Dosage: 90 MG, QMO
     Dates: start: 20110308
  2. ASPIRIN [Concomitant]
  3. AREDIA [Suspect]
     Dates: start: 20110408
  4. VELCADE [Concomitant]
  5. ACICLOVIR [Concomitant]
  6. DEXAMETHASONE [Concomitant]
  7. REVLIMID [Concomitant]
  8. PRISTIQ [Concomitant]

REACTIONS (4)
  - VENOUS THROMBOSIS LIMB [None]
  - INFUSION SITE SWELLING [None]
  - INFUSION SITE ERYTHEMA [None]
  - INFUSION SITE WARMTH [None]
